FAERS Safety Report 11441520 (Version 1)
Quarter: 2015Q3

REPORT INFORMATION
  Report Type: Report from Study
  Country: NZ (occurrence: NZ)
  Receive Date: 20150901
  Receipt Date: 20150901
  Transmission Date: 20151125
  Serious: Yes (Hospitalization)
  Sender: FDA-Public Use
  Company Number: NZ-ASTRAZENECA-2015SE80724

PATIENT
  Age: 2726 Week
  Sex: Male

DRUGS (1)
  1. BRILINTA [Suspect]
     Active Substance: TICAGRELOR
     Route: 048
     Dates: start: 20141031

REACTIONS (6)
  - Dizziness [Unknown]
  - Loss of consciousness [Unknown]
  - Internal haemorrhage [Unknown]
  - Gout [Unknown]
  - Pain in extremity [Unknown]
  - Vertigo [Unknown]

NARRATIVE: CASE EVENT DATE: 20141031
